FAERS Safety Report 26078563 (Version 1)
Quarter: 2025Q4

REPORT INFORMATION
  Report Type: Spontaneous
  Country: GB (occurrence: GB)
  Receive Date: 20251123
  Receipt Date: 20251123
  Transmission Date: 20260117
  Serious: Yes (Other)
  Sender: GALPHARM INTERNATIONAL
  Company Number: None

PATIENT
  Age: 51 Year
  Sex: Female
  Weight: 70 kg

DRUGS (5)
  1. NAPROXEN [Suspect]
     Active Substance: NAPROXEN
     Indication: Product used for unknown indication
     Dosage: ONE TO BE TAKEN TWICE A DAY
     Dates: start: 20251107, end: 20251112
  2. ESTRADIOL [Concomitant]
     Active Substance: ESTRADIOL
     Indication: Anxiety
     Dosage: 2 MEASURES DAILY
     Dates: start: 20251027
  3. NAPROXEN [Concomitant]
     Active Substance: NAPROXEN
     Dosage: ONE TO BE TAKEN TWICE A DAY AS REQUIRED AFTER FOOD
     Dates: start: 20251107
  4. OMEPRAZOLE [Concomitant]
     Active Substance: OMEPRAZOLE
     Dosage: ONE TO BE TAKEN EACH DAY WHILST TAKING NAPROXEN
     Dates: start: 20251107
  5. AMITRIPTYLINE [Concomitant]
     Active Substance: AMITRIPTYLINE
     Dosage: ONE TO BE TAKEN AT NIGHT FOT 7 DAYS THEN TWO AT NIGHT THEREAFTER
     Dates: start: 20251112

REACTIONS (1)
  - Lip swelling [Recovering/Resolving]

NARRATIVE: CASE EVENT DATE: 20251112
